FAERS Safety Report 13100160 (Version 2)
Quarter: 2017Q3

REPORT INFORMATION
  Report Type: Spontaneous
  Country: US (occurrence: US)
  Receive Date: 20170110
  Receipt Date: 20170925
  Transmission Date: 20171127
  Serious: No
  Sender: FDA-Public Use
  Company Number: US-ASTRAZENECA-2016SF35919

PATIENT
  Age: 78 Year
  Sex: Female
  Weight: 99.8 kg

DRUGS (5)
  1. SYMBICORT [Suspect]
     Active Substance: BUDESONIDE\FORMOTEROL FUMARATE DIHYDRATE
     Indication: CHRONIC OBSTRUCTIVE PULMONARY DISEASE
     Dosage: 10-12 DAYS AGO , TWICE A DAY
     Route: 055
     Dates: start: 201612
  2. TOPROL XL [Suspect]
     Active Substance: METOPROLOL SUCCINATE
     Indication: CARDIAC DISORDER
     Dosage: GENERIC, 50MG TWO TIMES A DAY.
     Route: 048
  3. SYMBICORT [Suspect]
     Active Substance: BUDESONIDE\FORMOTEROL FUMARATE DIHYDRATE
     Indication: CHRONIC OBSTRUCTIVE PULMONARY DISEASE
     Dosage: 160-4.5 UG, TWO PUFFS TWICE A DAY
     Route: 055
     Dates: start: 2009
  4. SIMVASTATIN. [Concomitant]
     Active Substance: SIMVASTATIN
     Indication: BLOOD PRESSURE MEASUREMENT
     Dosage: UNKNOWN
     Route: 048
  5. OMEPRAZOLE. [Suspect]
     Active Substance: OMEPRAZOLE
     Indication: GASTROOESOPHAGEAL REFLUX DISEASE
     Route: 048

REACTIONS (4)
  - Pulmonary congestion [Not Recovered/Not Resolved]
  - Dyspnoea [Unknown]
  - Device malfunction [Unknown]
  - Circumstance or information capable of leading to medication error [Unknown]

NARRATIVE: CASE EVENT DATE: 2016
